FAERS Safety Report 12913345 (Version 2)
Quarter: 2016Q4

REPORT INFORMATION
  Report Type: Spontaneous
  Country: JP (occurrence: JP)
  Receive Date: 20161104
  Receipt Date: 20161205
  Transmission Date: 20170207
  Serious: Yes (Hospitalization)
  Sender: FDA-Public Use
  Company Number: JP-GILEAD-2016-0240710

PATIENT
  Age: 40 Year
  Sex: Female

DRUGS (3)
  1. BOSENTAN HYDRATE [Concomitant]
     Dosage: 62.5 MG, 1D
  2. AMBRISENTAN [Suspect]
     Active Substance: AMBRISENTAN
     Indication: PRODUCT USED FOR UNKNOWN INDICATION
     Dosage: 10 MG, 1D
     Route: 048
  3. TADALAFIL [Concomitant]
     Active Substance: TADALAFIL
     Dosage: 20 MG, QD

REACTIONS (2)
  - Dyspnoea [Recovering/Resolving]
  - Drug effect incomplete [Unknown]
